FAERS Safety Report 8485832-5 (Version None)
Quarter: 2012Q3

REPORT INFORMATION
  Report Type: 
  Country: None (occurrence: None)
  Receive Date: 20120703
  Receipt Date: 20120628
  Transmission Date: 20120928
  Serious: Yes (Hospitalization)
  Sender: FDA-Public Use
  Company Number: PHEH2012US012507

PATIENT
  Sex: Male

DRUGS (14)
  1. AMLODIPINE [Concomitant]
  2. CARBOXYL [Concomitant]
  3. ASPIRIN [Concomitant]
  4. MAGNESIUM OXIDE [Concomitant]
  5. POVIDONE IODINE [Concomitant]
  6. METHYLCELLULOSE [Concomitant]
  7. DERMAZIN [Concomitant]
  8. MENTHOL [Concomitant]
  9. COLCINE [Concomitant]
  10. FERROUS GLUCONATE [Concomitant]
  11. BACLOFEN [Concomitant]
  12. HYDROCHLOROTHIAZIDE [Concomitant]
  13. ILARIS [Suspect]
     Dosage: 180 MG EVERY 8 WEEKS
  14. CYANOCOBALAMIN [Concomitant]

REACTIONS (2)
  - FALL [None]
  - HIP FRACTURE [None]
